FAERS Safety Report 15107946 (Version 2)
Quarter: 2018Q3

REPORT INFORMATION
  Report Type: Report from Study
  Country: US (occurrence: US)
  Receive Date: 20180704
  Receipt Date: 20180822
  Transmission Date: 20181010
  Serious: No
  Sender: FDA-Public Use
  Company Number: US-ALEXION PHARMACEUTICALS INC.-A201808013

PATIENT
  Sex: Male

DRUGS (1)
  1. SOLIRIS [Suspect]
     Active Substance: ECULIZUMAB
     Indication: PRODUCT USED FOR UNKNOWN INDICATION
     Route: 065

REACTIONS (7)
  - Dysphagia [Recovering/Resolving]
  - Heart rate increased [Unknown]
  - Tongue disorder [Unknown]
  - Eyelid ptosis [Recovered/Resolved]
  - Balance disorder [Not Recovered/Not Resolved]
  - Hypoacusis [Unknown]
  - Speech disorder [Unknown]
